FAERS Safety Report 11286792 (Version 1)
Quarter: 2015Q3

REPORT INFORMATION
  Report Type: Spontaneous
  Country: GB (occurrence: GB)
  Receive Date: 20150721
  Receipt Date: 20150721
  Transmission Date: 20151125
  Serious: Yes (Other)
  Sender: FDA-Public Use
  Company Number: GB-ALVOGEN-2015AL002884

PATIENT
  Sex: Female

DRUGS (3)
  1. TENORMIN [Suspect]
     Active Substance: ATENOLOL
     Indication: TACHYCARDIA
     Route: 048
  2. TENORMIN [Suspect]
     Active Substance: ATENOLOL
     Indication: TACHYCARDIA
     Route: 048
  3. TENORMIN [Suspect]
     Active Substance: ATENOLOL
     Indication: TACHYCARDIA
     Route: 048

REACTIONS (2)
  - Chest pain [Unknown]
  - Product substitution issue [Unknown]
